FAERS Safety Report 5589575-7 (Version None)
Quarter: 2008Q1

REPORT INFORMATION
  Report Type: 
  Country: None (occurrence: None)
  Receive Date: 20080114
  Receipt Date: 20080111
  Transmission Date: 20080703
  Serious: Yes (Other)
  Sender: FDA-Public Use
  Company Number: A0702589A

PATIENT
  Age: 51 Year
  Sex: Female
  Weight: 91.8 kg

DRUGS (1)
  1. ALLI [Suspect]
     Route: 048
     Dates: end: 20080109

REACTIONS (6)
  - BACK PAIN [None]
  - FALL [None]
  - HAEMATOCHEZIA [None]
  - LOSS OF CONSCIOUSNESS [None]
  - RECTAL HAEMORRHAGE [None]
  - VISUAL DISTURBANCE [None]
